FAERS Safety Report 21850017 (Version 1)
Quarter: 2023Q1

REPORT INFORMATION
  Report Type: Spontaneous
  Country: CO (occurrence: CO)
  Receive Date: 20230111
  Receipt Date: 20230111
  Transmission Date: 20230418
  Serious: Yes (Other)
  Sender: FDA-Public Use
  Company Number: CO-DSJP-DSE-2023-100445

PATIENT
  Age: 58 Year
  Sex: Male

DRUGS (1)
  1. EFFIENT [Suspect]
     Active Substance: PRASUGREL HYDROCHLORIDE
     Indication: Acute myocardial infarction
     Dosage: 10 MG, QD
     Route: 048
     Dates: start: 20211220, end: 20221217

REACTIONS (3)
  - Cellulitis [Recovered/Resolved]
  - Ingrowing nail [Recovered/Resolved]
  - Nail operation [Recovered/Resolved]

NARRATIVE: CASE EVENT DATE: 20221011
